FAERS Safety Report 18541386 (Version 2)
Quarter: 2020Q4

REPORT INFORMATION
  Report Type: Spontaneous
  Country: JP (occurrence: JP)
  Receive Date: 20201124
  Receipt Date: 20201201
  Transmission Date: 20210114
  Serious: Yes (Hospitalization)
  Sender: FDA-Public Use
  Company Number: JP-DSJP-DSJ-2020-135397

PATIENT

DRUGS (1)
  1. ENHERTU [Suspect]
     Active Substance: FAM-TRASTUZUMAB DERUXTECAN-NXKI
     Indication: HER2 POSITIVE GASTRIC CANCER
     Dosage: 6.4 MG/KG, ONCE EVERY 3 WK
     Route: 065
     Dates: start: 20201019

REACTIONS (1)
  - Shock haemorrhagic [Recovering/Resolving]

NARRATIVE: CASE EVENT DATE: 20201118
